FAERS Safety Report 6913567-6 (Version None)
Quarter: 2010Q3

REPORT INFORMATION
  Report Type: 
  Country: None (occurrence: None)
  Receive Date: 20100809
  Receipt Date: 20100730
  Transmission Date: 20110219
  Serious: Yes (Hospitalization)
  Sender: FDA-Public Use
  Company Number: DE-JNJFOC-20100800566

PATIENT
  Age: 65 Year
  Sex: Male

DRUGS (5)
  1. FENTANYL [Suspect]
     Indication: BACK PAIN
     Dosage: 50UG ALL 3 DAYS
     Route: 062
  2. AXITINIB [Suspect]
     Indication: METASTATIC RENAL CELL CARCINOMA
     Route: 048
  3. MORPHINE [Suspect]
     Indication: BACK PAIN
     Route: 048
  4. RANITIC [Concomitant]
     Indication: PROPHYLAXIS
     Route: 048
  5. PREGABALIN [Concomitant]
     Indication: BACK PAIN
     Route: 048

REACTIONS (1)
  - CONSTIPATION [None]
